FAERS Safety Report 5495518-7 (Version None)
Quarter: 2007Q4

REPORT INFORMATION
  Report Type: 
  Country: None (occurrence: None)
  Receive Date: 20071023
  Receipt Date: 20071008
  Transmission Date: 20080405
  Serious: Yes (Hospitalization)
  Sender: FDA-Public Use
  Company Number: 220002N07FRA

PATIENT
  Age: 37 Year
  Sex: Male

DRUGS (13)
  1. SAIZEN [Suspect]
     Indication: HYPOPITUITARISM
     Dosage: SEE IMAGE
     Route: 058
     Dates: start: 20051121, end: 20051217
  2. SAIZEN [Suspect]
     Indication: HYPOPITUITARISM
     Dosage: SEE IMAGE
     Route: 058
     Dates: start: 20051218, end: 20060717
  3. SAIZEN [Suspect]
     Indication: HYPOPITUITARISM
     Dosage: SEE IMAGE
     Route: 058
     Dates: start: 20060718, end: 20070418
  4. SAIZEN [Suspect]
     Indication: HYPOPITUITARISM
     Dosage: SEE IMAGE
     Route: 058
     Dates: start: 20070419
  5. LEVOTHYROXINE SODIUM [Concomitant]
  6. CYNOMEL (LIOTHYRONINE SODIUM) [Concomitant]
  7. HYDROCORTISONE (HYDROCORTISONE /00028601/) [Concomitant]
  8. DEPAKENE [Concomitant]
  9. LAMICTAL [Concomitant]
  10. ANAFRANIL [Concomitant]
  11. SIMVASTATIN [Concomitant]
  12. PERINDOPRIL ERBUMINE [Concomitant]
  13. EUROBIOL (PANCREATIN) [Concomitant]

REACTIONS (5)
  - BALANCE DISORDER [None]
  - BRAIN SCAN ABNORMAL [None]
  - CONDITION AGGRAVATED [None]
  - FALL [None]
  - VERTIGO [None]
